FAERS Safety Report 6526495-5 (Version None)
Quarter: 2010Q1

REPORT INFORMATION
  Report Type: 
  Country: None (occurrence: None)
  Receive Date: 20100105
  Receipt Date: 20091228
  Transmission Date: 20100710
  Serious: Yes (Hospitalization)
  Sender: FDA-Public Use
  Company Number: US-BRISTOL-MYERS SQUIBB COMPANY-14913529

PATIENT
  Age: 51 Year
  Sex: Female
  Weight: 50 kg

DRUGS (5)
  1. ABILIFY [Suspect]
     Indication: DEPRESSION
     Dosage: 1DF-1/2 TABS
     Dates: start: 20090623
  2. ABILIFY [Suspect]
     Indication: INSOMNIA
     Dosage: 1DF-1/2 TABS
     Dates: start: 20090623
  3. ABILIFY [Suspect]
     Indication: WEIGHT INCREASED
     Dosage: 1DF-1/2 TABS
     Dates: start: 20090623
  4. TRAZODONE HCL [Concomitant]
  5. AMBIEN [Concomitant]

REACTIONS (3)
  - HYPOTENSION [None]
  - LOSS OF CONSCIOUSNESS [None]
  - PALPITATIONS [None]
